FAERS Safety Report 11839732 (Version 1)
Quarter: 2015Q4

REPORT INFORMATION
  Report Type: Spontaneous
  Country: US (occurrence: US)
  Receive Date: 20151216
  Receipt Date: 20151216
  Transmission Date: 20160305
  Serious: Yes (Death)
  Sender: FDA-Public Use
  Company Number: US-BAYER-2015-485872

PATIENT
  Age: 72 Year
  Sex: Female

DRUGS (6)
  1. WARFARIN [Suspect]
     Active Substance: WARFARIN
     Route: 048
  2. ACETAMINOPHEN. [Suspect]
     Active Substance: ACETAMINOPHEN
     Route: 048
  3. IBUPROFEN. [Suspect]
     Active Substance: IBUPROFEN
     Route: 048
  4. SERTRALINE [Suspect]
     Active Substance: SERTRALINE HYDROCHLORIDE
     Route: 048
  5. ETHANOL [Suspect]
     Active Substance: ALCOHOL
     Route: 048
  6. NAPROXEN SODIUM ({= 220 MG) [Suspect]
     Active Substance: NAPROXEN SODIUM
     Route: 048

REACTIONS (1)
  - Toxicity to various agents [Fatal]
